FAERS Safety Report 17750852 (Version 1)
Quarter: 2020Q2

REPORT INFORMATION
  Report Type: Spontaneous
  Country: AT (occurrence: AT)
  Receive Date: 20200506
  Receipt Date: 20200506
  Transmission Date: 20200714
  Serious: Yes (Other)
  Sender: FDA-Public Use
  Company Number: AT-PFIZER INC-2020178812

PATIENT
  Age: 51 Year
  Sex: Female

DRUGS (5)
  1. BEVACIZUMAB. [Suspect]
     Active Substance: BEVACIZUMAB
     Indication: ADENOCARCINOMA
     Dosage: UNK
     Dates: start: 201905
  2. DENOSUMAB [Concomitant]
     Active Substance: DENOSUMAB
     Dosage: UNK
     Dates: end: 201908
  3. CARBOPLATIN. [Suspect]
     Active Substance: CARBOPLATIN
     Indication: ADENOCARCINOMA
     Dosage: UNK
     Dates: start: 201905, end: 201908
  4. PACLITAXEL. [Suspect]
     Active Substance: PACLITAXEL
     Indication: ADENOCARCINOMA
     Dosage: UNK
     Dates: start: 201905, end: 201908
  5. ATEZOLIZUMAB. [Suspect]
     Active Substance: ATEZOLIZUMAB
     Indication: ADENOCARCINOMA
     Dosage: UNK
     Dates: start: 201905

REACTIONS (3)
  - Hepatotoxicity [Unknown]
  - Neuropathy peripheral [Unknown]
  - Alopecia [Unknown]
